FAERS Safety Report 8535976-4 (Version None)
Quarter: 2012Q3

REPORT INFORMATION
  Report Type: 
  Country: None (occurrence: None)
  Receive Date: 20120725
  Receipt Date: 20120723
  Transmission Date: 20120928
  Serious: Yes (Life-Threatening)
  Sender: FDA-Public Use
  Company Number: PHFR2012GB004116

PATIENT
  Sex: Male

DRUGS (1)
  1. VOLTAREN [Suspect]
     Indication: ARTHRITIS
     Dosage: 50 MG, BID
     Dates: start: 20050101

REACTIONS (2)
  - CORONARY ARTERY DISEASE [None]
  - ARRHYTHMIA [None]
